FAERS Safety Report 14727706 (Version 1)
Quarter: 2018Q2

REPORT INFORMATION
  Report Type: Spontaneous
  Country: GB (occurrence: GB)
  Receive Date: 20180406
  Receipt Date: 20180406
  Transmission Date: 20180711
  Serious: Yes (Hospitalization, Other)
  Sender: FDA-Public Use
  Company Number: GB-009507513-1803GBR011816

PATIENT
  Age: 88 Year
  Sex: Male

DRUGS (8)
  1. CLARITHROMYCIN. [Concomitant]
     Active Substance: CLARITHROMYCIN
     Indication: MYCOBACTERIUM CHELONAE INFECTION
  2. LINEZOLID. [Concomitant]
     Active Substance: LINEZOLID
     Indication: OSTEOMYELITIS BACTERIAL
     Dosage: UNK
  3. LINEZOLID. [Concomitant]
     Active Substance: LINEZOLID
     Indication: MYCOBACTERIUM CHELONAE INFECTION
  4. IMIPENEM AND CILASTATIN [Suspect]
     Active Substance: CILASTATIN SODIUM\IMIPENEM
     Indication: MYCOBACTERIUM CHELONAE INFECTION
  5. SULFAMETHOXAZOLE (+) TRIMETHOPRIM [Concomitant]
     Active Substance: SULFAMETHOXAZOLE\TRIMETHOPRIM
     Indication: OSTEOMYELITIS BACTERIAL
     Dosage: 960 MG, BID
  6. IMIPENEM AND CILASTATIN [Suspect]
     Active Substance: CILASTATIN SODIUM\IMIPENEM
     Indication: OSTEOMYELITIS BACTERIAL
     Dosage: 250 MG, TID
  7. CLARITHROMYCIN. [Concomitant]
     Active Substance: CLARITHROMYCIN
     Indication: OSTEOMYELITIS BACTERIAL
     Dosage: 500 MG, BID
  8. SULFAMETHOXAZOLE (+) TRIMETHOPRIM [Concomitant]
     Active Substance: SULFAMETHOXAZOLE\TRIMETHOPRIM
     Indication: MYCOBACTERIUM CHELONAE INFECTION

REACTIONS (2)
  - Toxic encephalopathy [Recovered/Resolved]
  - Off label use [Unknown]
